FAERS Safety Report 8657887 (Version 4)
Quarter: 2012Q4

REPORT INFORMATION
  Report Type: 
  Country: US (occurrence: US)
  Receive Date: 20120710
  Receipt Date: 20120905
  Transmission Date: 20130627
  Serious: No
  Sender: FDA-Public Use
  Company Number: US-PFIZER INC-2012161110

PATIENT
  Age: 62 Year
  Sex: Female
  Weight: 77 kg

DRUGS (1)
  1. PREMARIN [Suspect]
     Indication: HORMONE REPLACEMENT THERAPY
     Dosage: 0.625 mg, 1x/day
     Route: 048
     Dates: start: 2006, end: 2012

REACTIONS (5)
  - Arthritis [Unknown]
  - Hot flush [Unknown]
  - Malaise [Unknown]
  - Limb discomfort [Unknown]
  - Feeling hot [Unknown]
